FAERS Safety Report 11107281 (Version 2)
Quarter: 2015Q2

REPORT INFORMATION
  Report Type: Report from Study
  Country: CN (occurrence: CN)
  Receive Date: 20150512
  Receipt Date: 20150629
  Transmission Date: 20150821
  Serious: Yes (Hospitalization, Other)
  Sender: FDA-Public Use
  Company Number: CN-GLAXOSMITHKLINE-CN2015GSK009738

PATIENT
  Age: 47 Year
  Sex: Female

DRUGS (1)
  1. BELIMUMAB [Suspect]
     Active Substance: BELIMUMAB
     Indication: SYSTEMIC LUPUS ERYTHEMATOSUS
     Dosage: 10 MG/KG, CYC
     Route: 042
     Dates: start: 20140114, end: 20141023

REACTIONS (3)
  - Cardiomyopathy [Recovering/Resolving]
  - Lupus pneumonitis [Recovering/Resolving]
  - Lupus nephritis [Recovering/Resolving]

NARRATIVE: CASE EVENT DATE: 20141229
